FAERS Safety Report 7370345-4 (Version None)
Quarter: 2011Q1

REPORT INFORMATION
  Report Type: 
  Country: None (occurrence: None)
  Receive Date: 20110323
  Receipt Date: 20110314
  Transmission Date: 20110831
  Serious: Yes (Other)
  Sender: FDA-Public Use
  Company Number: US-ASTRAZENECA-2011SE14429

PATIENT
  Age: 62 Year
  Sex: Female

DRUGS (1)
  1. NEXIUM [Suspect]
     Route: 048

REACTIONS (7)
  - HAEMOPTYSIS [None]
  - HIATUS HERNIA [None]
  - BREAST PAIN [None]
  - GASTROINTESTINAL ULCER HAEMORRHAGE [None]
  - DIVERTICULITIS [None]
  - MALAISE [None]
  - DRUG DOSE OMISSION [None]
